FAERS Safety Report 13514101 (Version 1)
Quarter: 2017Q2

REPORT INFORMATION
  Report Type: Spontaneous
  Country: US (occurrence: US)
  Receive Date: 20170504
  Receipt Date: 20170504
  Transmission Date: 20170830
  Serious: Yes (Hospitalization, Other)
  Sender: FDA-Public Use
  Company Number: US-BAXTER-2017BAX009956

PATIENT
  Age: 69 Year
  Sex: Male

DRUGS (1)
  1. DIANEAL LOW CALCIUM PERITONEAL DIALYSIS SOLUTION WITH DEXTROSE [Suspect]
     Active Substance: CALCIUM CHLORIDE\DEXTROSE\MAGNESIUM CHLORIDE\SODIUM CHLORIDE\SODIUM LACTATE
     Indication: PERITONEAL DIALYSIS
     Route: 033

REACTIONS (12)
  - Fall [Unknown]
  - Diabetes mellitus [Unknown]
  - Blood glucose decreased [Unknown]
  - Weight decreased [Unknown]
  - Pulmonary oedema [Unknown]
  - Hypophagia [Unknown]
  - Transient ischaemic attack [Unknown]
  - Hypotension [Unknown]
  - Hypotension [Unknown]
  - Cerebrovascular accident [Unknown]
  - Skin discolouration [Unknown]
  - Fluid retention [Unknown]

NARRATIVE: CASE EVENT DATE: 201702
